FAERS Safety Report 22062024 (Version 3)
Quarter: 2023Q1

REPORT INFORMATION
  Report Type: Spontaneous
  Country: IT (occurrence: IT)
  Receive Date: 20230304
  Receipt Date: 20230316
  Transmission Date: 20230417
  Serious: Yes (Hospitalization, Other)
  Sender: FDA-Public Use
  Company Number: IT-STADA-269919

PATIENT
  Sex: Female
  Weight: 2.2 kg

DRUGS (6)
  1. ASPIRIN [Suspect]
     Active Substance: ASPIRIN
     Indication: Product used for unknown indication
     Dosage: UNK
     Route: 064
  2. AMLODIPINE [Suspect]
     Active Substance: AMLODIPINE BESYLATE
     Indication: Hypertension
     Dosage: 0.02 MILLIGRAM/KILOGRAM, AS A SINGLE ADMINISTRATION
     Route: 065
  3. AMLODIPINE [Suspect]
     Active Substance: AMLODIPINE BESYLATE
     Dosage: 0.04 MILLIGRAM/KILOGRAM
     Route: 065
  4. OLMESARTAN [Suspect]
     Active Substance: OLMESARTAN
     Indication: Essential hypertension
     Dosage: 40 MILLIGRAM, ONCE A DAY
     Route: 064
  5. OLMESARTAN [Suspect]
     Active Substance: OLMESARTAN
     Indication: Maternal exposure during pregnancy
  6. NIFEDIPINE [Suspect]
     Active Substance: NIFEDIPINE
     Indication: Essential hypertension
     Dosage: UNK
     Route: 064

REACTIONS (9)
  - Blood aldosterone increased [Not Recovered/Not Resolved]
  - Hypocalvaria [Not Recovered/Not Resolved]
  - Hypertension [Not Recovered/Not Resolved]
  - Renal tubular dysfunction [Unknown]
  - Renin increased [Not Recovered/Not Resolved]
  - Bone density decreased [Not Recovered/Not Resolved]
  - Bone disorder [Unknown]
  - Foetal exposure during pregnancy [Unknown]
  - Drug ineffective [Unknown]
